FAERS Safety Report 8590426-7 (Version None)
Quarter: 2012Q3

REPORT INFORMATION
  Report Type: 
  Country: None (occurrence: None)
  Receive Date: 20120813
  Receipt Date: 20120718
  Transmission Date: 20120928
  Serious: Yes (Hospitalization)
  Sender: FDA-Public Use
  Company Number: JP-009507513-1208JPN005148

PATIENT

DRUGS (10)
  1. ALLOPURINOL [Concomitant]
     Indication: HYPERURICAEMIA
     Route: 048
  2. PEG-INTRON [Suspect]
     Dosage: 50/83.4MCG/KG/WEEK
     Route: 058
     Dates: start: 20120630
  3. TENORMIN [Concomitant]
     Indication: HYPERTENSION
     Route: 048
  4. PEG-INTRON [Suspect]
     Indication: HEPATITIS C
     Dosage: 100MCG/KG/WEEK
     Route: 058
     Dates: start: 20120526, end: 20120630
  5. TELAVIC [Suspect]
     Indication: HEPATITIS C
     Route: 048
     Dates: start: 20120526, end: 20120630
  6. REBETOL [Suspect]
     Indication: HEPATITIS C
     Route: 048
     Dates: start: 20120526, end: 20120615
  7. REBETOL [Suspect]
     Route: 048
     Dates: start: 20120616, end: 20120630
  8. ATMIPHEN [Concomitant]
     Indication: PROPHYLAXIS
     Route: 048
  9. DIOVAN [Concomitant]
     Indication: HYPERTENSION
     Route: 048
  10. BETAMETHASONE SODIUM PHOSPHATE [Concomitant]
     Indication: PROPHYLAXIS
     Route: 061
     Dates: start: 20120616

REACTIONS (1)
  - GENERALISED ERYTHEMA [None]
